FAERS Safety Report 16383899 (Version 2)
Quarter: 2019Q2

REPORT INFORMATION
  Report Type: Report from Study
  Country: JP (occurrence: JP)
  Receive Date: 20190603
  Receipt Date: 20190611
  Transmission Date: 20190711
  Serious: Yes (Death, Hospitalization)
  Sender: FDA-Public Use
  Company Number: JP-ACTELION-A-CH2019-190873

PATIENT
  Age: 76 Year
  Sex: Female
  Weight: 47.8 kg

DRUGS (6)
  1. UPTRAVI [Suspect]
     Active Substance: SELEXIPAG
     Dosage: 0.6 MG, BID
     Route: 048
     Dates: start: 20180309, end: 20180315
  2. ADCIRCA [Concomitant]
     Active Substance: TADALAFIL
     Indication: PULMONARY HYPERTENSION
     Dosage: 40 MG, QD
     Dates: start: 20160223, end: 20190508
  3. WARFARIN [Concomitant]
     Active Substance: WARFARIN
     Indication: PULMONARY HYPERTENSION
     Dosage: 3 MG, QD
  4. OPSUMIT [Concomitant]
     Active Substance: MACITENTAN
     Indication: PULMONARY HYPERTENSION
     Dosage: 10 MG, QD
     Route: 048
     Dates: end: 20190508
  5. UPTRAVI [Suspect]
     Active Substance: SELEXIPAG
     Dosage: 0.2 MG, BID
     Route: 048
     Dates: start: 20180302, end: 20180308
  6. UPTRAVI [Suspect]
     Active Substance: SELEXIPAG
     Indication: PULMONARY HYPERTENSION
     Dosage: 1.0 MG, BID
     Route: 048
     Dates: start: 20180316, end: 20190508

REACTIONS (3)
  - Cerebellar haemorrhage [Fatal]
  - Brain stem haemorrhage [Fatal]
  - Pulmonary endarterectomy [Unknown]

NARRATIVE: CASE EVENT DATE: 20190508
